FAERS Safety Report 13023128 (Version 1)
Quarter: 2016Q4

REPORT INFORMATION
  Report Type: Spontaneous
  Country: US (occurrence: US)
  Receive Date: 20161213
  Receipt Date: 20161213
  Transmission Date: 20170207
  Serious: No
  Sender: FDA-Public Use
  Company Number: US-TEVA-682749USA

PATIENT
  Sex: Female
  Weight: 54.48 kg

DRUGS (1)
  1. AZITHROMYCIN ANHYDROUS. [Suspect]
     Active Substance: AZITHROMYCIN ANHYDROUS
     Indication: MYCOBACTERIUM AVIUM COMPLEX INFECTION
     Dosage: 500 MILLIGRAM DAILY;
     Dates: start: 20160704

REACTIONS (4)
  - Product solubility abnormal [Unknown]
  - Dry mouth [Unknown]
  - Hyperaesthesia [Unknown]
  - Tongue discomfort [Unknown]
